FAERS Safety Report 6349387-3 (Version None)
Quarter: 2009Q3

REPORT INFORMATION
  Report Type: 
  Country: None (occurrence: None)
  Receive Date: 20090911
  Receipt Date: 20090902
  Transmission Date: 20100115
  Serious: Yes (Hospitalization, Other)
  Sender: FDA-Public Use
  Company Number: US-ABBOTT-09P-163-0595064-00

PATIENT
  Sex: Female
  Weight: 73.548 kg

DRUGS (5)
  1. HUMIRA [Suspect]
     Indication: CROHN'S DISEASE
     Route: 058
     Dates: start: 20070901, end: 20090201
  2. HUMIRA [Suspect]
     Route: 058
     Dates: start: 20090201, end: 20090701
  3. HUMIRA [Suspect]
     Dosage: TAKING MEDICATION EVERY 10 DAYS OR TWO AND A HALF WEEKS
     Route: 058
     Dates: start: 20090701
  4. ENDOCORT [Concomitant]
     Indication: CROHN'S DISEASE
     Route: 048
  5. SYNTHROID [Concomitant]
     Indication: HYPOTHYROIDISM
     Route: 048

REACTIONS (17)
  - ARTHRALGIA [None]
  - ARTHRITIS [None]
  - ASTHENIA [None]
  - CONVULSION [None]
  - DIARRHOEA [None]
  - DRUG DOSE OMISSION [None]
  - DYSPNOEA [None]
  - FEELING ABNORMAL [None]
  - FEELING COLD [None]
  - GASTRIC INFECTION [None]
  - GENERALISED ERYTHEMA [None]
  - HAEMATOCRIT DECREASED [None]
  - HYPERSOMNIA [None]
  - INFECTION [None]
  - PYREXIA [None]
  - TREMOR [None]
  - VOMITING [None]
